FAERS Safety Report 8553910-8 (Version None)
Quarter: 2012Q3

REPORT INFORMATION
  Report Type: 
  Country: None (occurrence: None)
  Receive Date: 20120725
  Receipt Date: 20120725
  Transmission Date: 20120928
  Serious: Yes (Other)
  Sender: FDA-Public Use
  Company Number: None

PATIENT
  Sex: Female

DRUGS (1)
  1. PROTONIX [Suspect]
     Indication: VOMITING
     Dosage: 80MG ONCE IV
     Route: 042

REACTIONS (3)
  - GAIT DISTURBANCE [None]
  - BACK PAIN [None]
  - ARTHRALGIA [None]
